FAERS Safety Report 21944430 (Version 1)
Quarter: 2023Q1

REPORT INFORMATION
  Report Type: Other
  Country: None (occurrence: KR)
  Receive Date: 20230202
  Receipt Date: 20230202
  Transmission Date: 20230417
  Serious: Yes (Other)
  Sender: FDA-Public Use
  Company Number: KR-Spectra Medical Devices, LLC-2137399

PATIENT
  Age: 42 Year
  Sex: Female

DRUGS (1)
  1. LIDOCAINE HYDROCHLORIDE ANHYDROUS [Suspect]
     Active Substance: LIDOCAINE HYDROCHLORIDE ANHYDROUS
     Indication: Dental operation
     Route: 023

REACTIONS (1)
  - Paralysis [Recovered/Resolved]
